FAERS Safety Report 4509753-5 (Version None)
Quarter: 2004Q4

REPORT INFORMATION
  Report Type: 
  Country: None (occurrence: None)
  Receive Date: 20041124
  Receipt Date: 20031027
  Transmission Date: 20050328
  Serious: No
  Sender: FDA-Public Use
  Company Number: US-BRISTOL-MYERS SQUIBB COMPANY-12419644

PATIENT
  Age: 68 Year
  Sex: Female
  Weight: 68 kg

DRUGS (5)
  1. AVALIDE [Suspect]
     Indication: HYPERTENSION
     Dosage: DOSAGE TAKEN ^AT ABOUT 6PM^;
     Route: 048
  2. ZOLOFT [Concomitant]
  3. TIMOLOL MALEATE [Concomitant]
     Dosage: EYE DROPS
     Route: 047
  4. XALATAN [Concomitant]
     Dosage: EYE DROPS
     Route: 047
  5. FLONASE [Concomitant]
     Dosage: TAKEN OCCASIONALLY

REACTIONS (2)
  - DRUG INEFFECTIVE [None]
  - RASH PRURITIC [None]
